FAERS Safety Report 5734777-X (Version None)
Quarter: 2008Q2

REPORT INFORMATION
  Report Type: 
  Country: None (occurrence: None)
  Receive Date: 20080512
  Receipt Date: 20080508
  Transmission Date: 20081010
  Serious: Yes (Hospitalization, Other)
  Sender: FDA-Public Use
  Company Number: PHNU2007DE03707

PATIENT
  Sex: Male

DRUGS (4)
  1. CLOZAPINE [Suspect]
     Indication: SCHIZOPHRENIA
     Dosage: UP TO 300 MG/DAY
     Route: 048
     Dates: start: 20070701
  2. CLOZAPINE [Suspect]
     Dosage: 225 MG/DAY
     Route: 048
     Dates: start: 20071107
  3. ERGENYL [Concomitant]
     Dosage: 2400 MG/DAY
     Route: 048
  4. METOPROLOL SUCCINATE [Concomitant]
     Dosage: 47.5 MG/DAY
     Route: 048

REACTIONS (10)
  - ANISOCYTOSIS [None]
  - BAND NEUTROPHIL COUNT DECREASED [None]
  - EOSINOPHILIA [None]
  - HYPOCHROMASIA [None]
  - LYMPHOCYTOSIS [None]
  - MYELOCYTE PRESENT [None]
  - NEUTROPENIA [None]
  - NEUTROPHIL PERCENTAGE DECREASED [None]
  - POIKILOCYTOSIS [None]
  - POLYCHROMASIA [None]
